FAERS Safety Report 4683719-7 (Version None)
Quarter: 2005Q2

REPORT INFORMATION
  Report Type: 
  Country: None (occurrence: None)
  Receive Date: 20050607
  Receipt Date: 20050527
  Transmission Date: 20051028
  Serious: Yes (Hospitalization)
  Sender: FDA-Public Use
  Company Number: FR-ABBOTT-05P-056-0302380-00

PATIENT
  Sex: Female

DRUGS (12)
  1. AKINETON [Suspect]
     Indication: DRUG USE FOR UNKNOWN INDICATION
     Route: 048
     Dates: end: 20041110
  2. CHLORPROMAZINE HCL [Concomitant]
     Indication: DRUG USE FOR UNKNOWN INDICATION
     Dates: end: 20040301
  3. CHLORPROMAZINE HCL [Concomitant]
     Dates: start: 20041110, end: 20050112
  4. CHLORPROMAZINE HCL [Concomitant]
     Dates: start: 20050112
  5. CLONAZEPAM [Concomitant]
     Indication: DRUG USE FOR UNKNOWN INDICATION
     Dosage: 1/2
     Route: 048
     Dates: end: 20050112
  6. CLONAZEPAM [Concomitant]
     Dates: start: 20050112
  7. LITHIUM CARBONATE [Concomitant]
     Indication: DRUG USE FOR UNKNOWN INDICATION
     Dosage: LP
     Route: 048
  8. LITHIUM CARBONATE [Concomitant]
     Dosage: 400
     Dates: start: 20040801, end: 20050112
  9. LITHIUM CARBONATE [Concomitant]
     Dates: start: 20050112
  10. RISPERIDONE [Concomitant]
     Indication: DRUG USE FOR UNKNOWN INDICATION
     Dates: end: 20040523
  11. HALDOL [Concomitant]
     Indication: DRUG USE FOR UNKNOWN INDICATION
     Dates: end: 20040301
  12. ZOPICLONE [Concomitant]
     Indication: DRUG USE FOR UNKNOWN INDICATION
     Dates: start: 20040825

REACTIONS (3)
  - ABORTION [None]
  - BIPOLAR I DISORDER [None]
  - WEIGHT INCREASED [None]
